FAERS Safety Report 8209284-5 (Version None)
Quarter: 2012Q1

REPORT INFORMATION
  Report Type: 
  Country: None (occurrence: None)
  Receive Date: 20120227
  Receipt Date: 20111223
  Transmission Date: 20120608
  Serious: No
  Sender: FDA-Public Use
  Company Number: 341992

PATIENT
  Age: 64 Year
  Sex: Female

DRUGS (4)
  1. VICTOZA [Suspect]
     Indication: TYPE 2 DIABETES MELLITUS
     Dosage: UNKNOWN, SUBCUTANEOUS
     Route: 058
  2. POTASSIUM CHLORIDE [Concomitant]
  3. LASIX [Concomitant]
  4. ENBREL [Concomitant]

REACTIONS (3)
  - RETCHING [None]
  - NAUSEA [None]
  - BLOOD GLUCOSE DECREASED [None]
